FAERS Safety Report 7378698-8 (Version None)
Quarter: 2011Q1

REPORT INFORMATION
  Report Type: 
  Country: None (occurrence: None)
  Receive Date: 20110328
  Receipt Date: 20110323
  Transmission Date: 20110831
  Serious: Yes (Other)
  Sender: FDA-Public Use
  Company Number: GB-ELI_LILLY_AND_COMPANY-GB201103006135

PATIENT
  Age: 67 Year
  Sex: Male

DRUGS (14)
  1. VICTOZA [Concomitant]
     Indication: DIABETES MELLITUS
     Dosage: 1.5 MG, UNK
     Route: 058
     Dates: start: 20110111, end: 20110303
  2. FERROUS SULFATE TAB [Concomitant]
  3. GLICLAZIDE [Concomitant]
  4. ISOSORBIDE MONONITRATE [Concomitant]
  5. RAMIPRIL [Concomitant]
  6. OMEPRAZOLE [Concomitant]
  7. SPIRONOLACTONE [Concomitant]
  8. CLOPIDOGREL [Concomitant]
  9. BYETTA [Suspect]
     Indication: DIABETES MELLITUS
     Dosage: 10 UG, UNK
     Dates: start: 20091030, end: 20101112
  10. BISOPROLOL FUMARATE [Concomitant]
  11. FUROSEMIDE [Concomitant]
  12. METFORMIN [Concomitant]
  13. ASPIRIN [Concomitant]
  14. ATORVASTATIN CALCIUM [Concomitant]

REACTIONS (1)
  - LIVER FUNCTION TEST ABNORMAL [None]
